FAERS Safety Report 4373055-0 (Version None)
Quarter: 2004Q2

REPORT INFORMATION
  Report Type: 
  Country: None (occurrence: None)
  Receive Date: 20040526
  Receipt Date: 20040510
  Transmission Date: 20050107
  Serious: Yes (Other)
  Sender: FDA-Public Use
  Company Number: DSA_24417_2004

PATIENT
  Age: 66 Year
  Sex: Male

DRUGS (1)
  1. ENALAPRIL MALEATE [Suspect]
     Dosage: 20 MG QD PO
     Route: 048

REACTIONS (15)
  - ARTHRALGIA [None]
  - C-REACTIVE PROTEIN INCREASED [None]
  - DYSPNOEA [None]
  - EOSINOPHIL COUNT INCREASED [None]
  - GAMMA-GLUTAMYLTRANSFERASE INCREASED [None]
  - INFLAMMATION [None]
  - JOINT SWELLING [None]
  - LUNG DISORDER [None]
  - MYOSITIS [None]
  - OEDEMA PERIPHERAL [None]
  - PYREXIA [None]
  - RED BLOOD CELL SEDIMENTATION RATE INCREASED [None]
  - SOFT TISSUE INFLAMMATION [None]
  - TENDONITIS [None]
  - WHITE BLOOD CELL COUNT INCREASED [None]
